FAERS Safety Report 9783133 (Version 1)
Quarter: 2013Q4

REPORT INFORMATION
  Report Type: Spontaneous
  Country: US (occurrence: None)
  Receive Date: 20131223
  Receipt Date: 20131223
  Transmission Date: 20140711
  Serious: No
  Sender: FDA-Public Use
  Company Number: EUS-2011-00783

PATIENT
  Age: 5 Year
  Sex: Male

DRUGS (16)
  1. ERWINASE (ASPARAGINASE) [Suspect]
     Indication: ACUTE LYMPHOCYTIC LEUKAEMIA
     Route: 030
     Dates: start: 20111021, end: 20111021
  2. BACTRIM (BACTRIM) (SULFAMETHOXAZOLE, TRIMETHOPRIM) [Concomitant]
  3. PEPCID (FAMOTIDINE) [Concomitant]
  4. GABAPENTIN [Concomitant]
  5. MIRALAX [Concomitant]
  6. ZOFRAN (ONDANSETRON) [Concomitant]
  7. SIMETHICONE [Concomitant]
  8. SALT AND SODA (SODIUM CHLORIDE) [Concomitant]
  9. METHOTREXATE [Concomitant]
  10. SODIUM CHLORIDE [Concomitant]
  11. LIDOCAINE-PRILOCAINE (LIDOCAINE) [Concomitant]
  12. ONDANSETRON HCL (ONDANSETRON HYDROCHLORIDE) [Concomitant]
  13. VINCRISTINE (VINCRISTINE) [Concomitant]
  14. DIPHENHYDRAMINE [Concomitant]
  15. LACTATED RINGER^S (RINGER - LACTATE) [Concomitant]
  16. DOXORUBICIN [Concomitant]

REACTIONS (7)
  - Nausea [None]
  - Vomiting [None]
  - Dermatitis [None]
  - Catheter site erythema [None]
  - Pain in extremity [None]
  - Pain in extremity [None]
  - Hypersensitivity [None]
